FAERS Safety Report 24022439 (Version 1)
Quarter: 2024Q2

REPORT INFORMATION
  Report Type: Report from Study
  Country: AU (occurrence: AU)
  Receive Date: 20240627
  Receipt Date: 20240627
  Transmission Date: 20240717
  Serious: No
  Sender: FDA-Public Use
  Company Number: AU-ROCHE-3296680

PATIENT
  Age: 42 Year
  Sex: Female
  Weight: 61.9 kg

DRUGS (8)
  1. ALECTINIB [Suspect]
     Active Substance: ALECTINIB
     Indication: Non-small cell lung cancer metastatic
     Route: 048
     Dates: start: 20220131
  2. NIZATIDINE [Concomitant]
     Active Substance: NIZATIDINE
     Indication: Gastrooesophageal reflux disease
     Route: 048
     Dates: start: 2021
  3. MOVICOL [Concomitant]
     Active Substance: POLYETHYLENE GLYCOL 3350\POTASSIUM CHLORIDE\SODIUM BICARBONATE\SODIUM CHLORIDE
     Route: 048
     Dates: start: 20220408, end: 20240301
  4. RIVAROXABAN [Concomitant]
     Active Substance: RIVAROXABAN
     Indication: Deep vein thrombosis
     Route: 048
     Dates: start: 20220310
  5. RIVAROXABAN [Concomitant]
     Active Substance: RIVAROXABAN
     Dosage: /DVT PROPHYLAXIS
     Route: 048
     Dates: start: 20220203, end: 20230309
  6. DOXYCYCLINE [Concomitant]
     Active Substance: DOXYCYCLINE\DOXYCYCLINE HYCLATE
     Route: 048
     Dates: start: 20221226, end: 20230113
  7. METRONIDAZOLE [Concomitant]
     Active Substance: METRONIDAZOLE
     Indication: Rash
     Dosage: 1 OTHER
     Route: 061
     Dates: start: 20221008
  8. ACETAMINOPHEN [Concomitant]
     Active Substance: ACETAMINOPHEN
     Indication: Sciatica
     Route: 048
     Dates: start: 20220929

REACTIONS (1)
  - Gastrointestinal infection [Recovered/Resolved]

NARRATIVE: CASE EVENT DATE: 20230122
